FAERS Safety Report 8616923-3 (Version None)
Quarter: 2012Q3

REPORT INFORMATION
  Report Type: 
  Country: None (occurrence: None)
  Receive Date: 20120823
  Receipt Date: 20120810
  Transmission Date: 20120928
  Serious: No
  Sender: FDA-Public Use
  Company Number: US-009507513-1208USA005393

PATIENT

DRUGS (1)
  1. PEG-INTRON [Suspect]
     Dosage: 150 MG, QW
     Route: 058
     Dates: start: 20120727

REACTIONS (3)
  - PRODUCT QUALITY ISSUE [None]
  - DRUG ADMINISTRATION ERROR [None]
  - NO ADVERSE EVENT [None]
